FAERS Safety Report 5122237-9 (Version None)
Quarter: 2006Q4

REPORT INFORMATION
  Report Type: 
  Country: None (occurrence: None)
  Receive Date: 20061006
  Receipt Date: 20060815
  Transmission Date: 20070319
  Serious: Yes (Disabling)
  Sender: FDA-Public Use
  Company Number: US-MERCK-0608USA03649

PATIENT
  Age: 62 Year
  Sex: Female
  Weight: 55 kg

DRUGS (2)
  1. FOSAMAX [Suspect]
     Indication: OSTEOPOROSIS
     Route: 048
     Dates: start: 20060801, end: 20060901
  2. PREDNISONE TAB [Concomitant]
     Route: 065

REACTIONS (5)
  - BACK PAIN [None]
  - FACIAL PAIN [None]
  - HEADACHE [None]
  - NECK PAIN [None]
  - PAIN IN JAW [None]
